FAERS Safety Report 11233830 (Version 1)
Quarter: 2015Q3

REPORT INFORMATION
  Report Type: Spontaneous
  Country: GB (occurrence: GB)
  Receive Date: 20150702
  Receipt Date: 20150702
  Transmission Date: 20151125
  Serious: Yes (Life-Threatening, Hospitalization)
  Sender: FDA-Public Use
  Company Number: GB-ACCORD-031677

PATIENT
  Age: 39 Year
  Weight: 81.18 kg

DRUGS (4)
  1. MAXITRAM SR [Concomitant]
  2. NAPROXEN. [Concomitant]
     Active Substance: NAPROXEN
  3. DESOGESTREL [Concomitant]
     Active Substance: DESOGESTREL
  4. AMITRIPTYLINE [Suspect]
     Active Substance: AMITRIPTYLINE
     Indication: BACK PAIN
     Dosage: RECEIVED 10 MG FROM 19-JAN-2014 TO 27-MAY-2015(DURATION:493 DAYS), REINTRODUCE AFTER 3 DAYS AT 10MG
     Route: 048
     Dates: start: 20150528, end: 20150602

REACTIONS (6)
  - Dizziness [Recovered/Resolved]
  - Blood pressure immeasurable [Recovered/Resolved]
  - Off label use [Unknown]
  - Supraventricular tachycardia [Recovered/Resolved]
  - Dyspnoea [Recovered/Resolved]
  - Headache [Recovered/Resolved]

NARRATIVE: CASE EVENT DATE: 20150602
